FAERS Safety Report 12993450 (Version 1)
Quarter: 2016Q4

REPORT INFORMATION
  Report Type: Spontaneous
  Country: US (occurrence: US)
  Receive Date: 20161201
  Receipt Date: 20161201
  Transmission Date: 20170207
  Serious: Yes (Hospitalization)
  Sender: FDA-Public Use
  Company Number: None

PATIENT
  Age: 69 Year
  Sex: Male
  Weight: 81.65 kg

DRUGS (1)
  1. AMOXICILLIN CAPSULE SANDOZ [Suspect]
     Active Substance: AMOXICILLIN
     Indication: TOOTH EXTRACTION
     Dosage: 4 PILLS 1 HR PRIOR MOUTH
     Route: 048
     Dates: start: 20161031, end: 20161031

REACTIONS (5)
  - Hyperhidrosis [None]
  - Loss of consciousness [None]
  - Malaise [None]
  - Nausea [None]
  - Seizure [None]

NARRATIVE: CASE EVENT DATE: 20161031
